FAERS Safety Report 7595388-7 (Version None)
Quarter: 2011Q2

REPORT INFORMATION
  Report Type: 
  Country: None (occurrence: None)
  Receive Date: 20110620
  Receipt Date: 20110428
  Transmission Date: 20111010
  Serious: Yes (Hospitalization)
  Sender: FDA-Public Use
  Company Number: UTC-006741

PATIENT
  Age: 55 Year
  Sex: Female
  Weight: 93.9 kg

DRUGS (3)
  1. TYVASO [Suspect]
     Indication: PULMONARY ARTERIAL HYPERTENSION
     Dosage: SEE IMAGE
     Route: 055
     Dates: start: 20100820
  2. REVATIO [Suspect]
  3. TRACLEER [Suspect]

REACTIONS (7)
  - COUGH [None]
  - DYSPNOEA [None]
  - DYSPEPSIA [None]
  - NON-CARDIAC CHEST PAIN [None]
  - NAUSEA [None]
  - FATIGUE [None]
  - VOMITING [None]
